FAERS Safety Report 5193918-6 (Version None)
Quarter: 2006Q4

REPORT INFORMATION
  Report Type: 
  Country: None (occurrence: None)
  Receive Date: 20061228
  Receipt Date: 20061212
  Transmission Date: 20070319
  Serious: Yes (Hospitalization)
  Sender: FDA-Public Use
  Company Number: 2006AP05952

PATIENT
  Age: 64 Year
  Sex: Male

DRUGS (1)
  1. MEROPENEM [Suspect]
     Indication: PNEUMONIA
     Route: 041
     Dates: start: 20061020, end: 20061028

REACTIONS (5)
  - ALANINE AMINOTRANSFERASE INCREASED [None]
  - ASPARTATE AMINOTRANSFERASE INCREASED [None]
  - FACE OEDEMA [None]
  - RASH [None]
  - WHITE BLOOD CELL COUNT INCREASED [None]
